FAERS Safety Report 8503123-0 (Version None)
Quarter: 2012Q3

REPORT INFORMATION
  Report Type: 
  Country: None (occurrence: None)
  Receive Date: 20120711
  Receipt Date: 20120709
  Transmission Date: 20120928
  Serious: No
  Sender: FDA-Public Use
  Company Number: US-PFIZER INC-2012164909

PATIENT
  Sex: Female

DRUGS (4)
  1. CHANTIX [Suspect]
     Indication: SMOKING CESSATION THERAPY
     Dosage: 0.5 MG, UNK
     Route: 048
     Dates: start: 20120301, end: 20120301
  2. CHANTIX [Suspect]
     Dosage: UNK
     Dates: start: 20120101
  3. ZETIA [Concomitant]
     Indication: BLOOD CHOLESTEROL INCREASED
     Dosage: UNK
  4. CHANTIX [Suspect]
     Dosage: 1 MG, DAILY
     Route: 048
     Dates: start: 20120301, end: 20120101

REACTIONS (1)
  - FLATULENCE [None]
